FAERS Safety Report 7876410-7 (Version None)
Quarter: 2011Q4

REPORT INFORMATION
  Report Type: 
  Country: None (occurrence: None)
  Receive Date: 20111031
  Receipt Date: 20111025
  Transmission Date: 20120403
  Serious: Yes (Other)
  Sender: FDA-Public Use
  Company Number: PHHY2011ES94165

PATIENT
  Age: 78 Year
  Sex: Female

DRUGS (4)
  1. TEVETENS [Concomitant]
  2. STALEVO 100 [Suspect]
     Indication: PARKINSON'S DISEASE
     Dosage: UNK UKN, UNK
     Dates: start: 20080501, end: 20110315
  3. AZILECT [Suspect]
     Indication: PARKINSON'S DISEASE
     Dosage: 1 MG, DAILY
     Dates: start: 20080701, end: 20110315
  4. LOPERAMIDE HYDROCHLORIDE [Concomitant]

REACTIONS (1)
  - LEUKOPENIA [None]
